FAERS Safety Report 19618885 (Version 1)
Quarter: 2021Q3

REPORT INFORMATION
  Report Type: Spontaneous
  Country: US (occurrence: US)
  Receive Date: 20210727
  Receipt Date: 20210727
  Transmission Date: 20211014
  Serious: No
  Sender: FDA-Public Use
  Company Number: US-ROCHE-2772582

PATIENT
  Age: 41 Year
  Sex: Female
  Weight: 86.71 kg

DRUGS (3)
  1. XELODA [Suspect]
     Active Substance: CAPECITABINE
     Indication: PRODUCT USED FOR UNKNOWN INDICATION
     Dosage: 3?500MG TABLETS DAY 1 ?DAY 14 OF 28 DAY CYCLE, ONGOING: NO
     Route: 048
     Dates: start: 202101
  2. XELODA [Suspect]
     Active Substance: CAPECITABINE
     Dosage: 14 DAYS ON, 7 DAYS OFF.
     Route: 048
     Dates: start: 202101
  3. TEMOZOLAMIDE [Concomitant]
     Active Substance: TEMOZOLOMIDE
     Indication: NEUROENDOCRINE CARCINOMA
     Dosage: 4?100MG CAPSULES DAY 10?DAY 14 OF 28 DAY CYCLE, ONGOING NO
     Dates: start: 202102

REACTIONS (7)
  - Stomatitis [Not Recovered/Not Resolved]
  - Dry skin [Unknown]
  - Dry mouth [Not Recovered/Not Resolved]
  - Constipation [Unknown]
  - Palmar-plantar erythrodysaesthesia syndrome [Not Recovered/Not Resolved]
  - Nausea [Recovered/Resolved]
  - Off label use [Unknown]

NARRATIVE: CASE EVENT DATE: 20210203
